FAERS Safety Report 11685797 (Version 2)
Quarter: 2015Q4

REPORT INFORMATION
  Report Type: Spontaneous
  Country: FR (occurrence: FR)
  Receive Date: 20151030
  Receipt Date: 20151124
  Transmission Date: 20160304
  Serious: Yes (Death)
  Sender: FDA-Public Use
  Company Number: FR-TEVA-604307ISR

PATIENT
  Age: 29 Year
  Sex: Male

DRUGS (4)
  1. NORDAZEPAM [Suspect]
     Active Substance: NORDAZEPAM
     Route: 065
  2. DUROGESIC [Interacting]
     Active Substance: FENTANYL
     Dosage: TWO PATCHES (DOSE STRENGTH NOT SPECIFIED)
     Route: 062
  3. DIAZEPAM. [Suspect]
     Active Substance: DIAZEPAM
     Route: 065
  4. DUROGESIC [Interacting]
     Active Substance: FENTANYL
     Dosage: 1X 50 MICROG/H
     Route: 062

REACTIONS (1)
  - Drug interaction [Fatal]
